FAERS Safety Report 5298295-8 (Version None)
Quarter: 2007Q2

REPORT INFORMATION
  Report Type: 
  Country: None (occurrence: None)
  Receive Date: 20070409
  Receipt Date: 20070402
  Transmission Date: 20071010
  Serious: Yes (Hospitalization)
  Sender: FDA-Public Use
  Company Number: 237935

PATIENT
  Age: 69 Year
  Sex: Female

DRUGS (3)
  1. ALTEPLASE(ALTEPLASE) POWDER AND SOLVENT FOR SOLUTION FOR INFUSION [Suspect]
     Indication: CEREBRAL INFARCTION
     Dosage: 28.8 MG, SINGLE; INTRAVENOUS
     Route: 042
     Dates: start: 20070214, end: 20070214
  2. RADICUT (EDARAVONE) [Concomitant]
  3. HAEMORRHAGE [Concomitant]

REACTIONS (5)
  - ALANINE AMINOTRANSFERASE INCREASED [None]
  - ASPARTATE AMINOTRANSFERASE INCREASED [None]
  - BRAIN STEM HAEMORRHAGE [None]
  - CEREBRAL HAEMORRHAGE [None]
  - DISSEMINATED INTRAVASCULAR COAGULATION [None]
